FAERS Safety Report 11391663 (Version 3)
Quarter: 2015Q4

REPORT INFORMATION
  Report Type: Spontaneous
  Country: US (occurrence: US)
  Receive Date: 20150818
  Receipt Date: 20151228
  Transmission Date: 20160304
  Serious: Yes (Hospitalization, Other)
  Sender: FDA-Public Use
  Company Number: US-PFIZER INC-2015266721

PATIENT
  Age: 52 Year
  Sex: Female

DRUGS (2)
  1. TRILEPTAL [Suspect]
     Active Substance: OXCARBAZEPINE
     Indication: SEIZURE
     Dosage: UNK
     Route: 048
     Dates: end: 2012
  2. NEURONTIN [Suspect]
     Active Substance: GABAPENTIN
     Indication: SEIZURE
     Dosage: UNK
     Route: 048
     Dates: end: 2012

REACTIONS (13)
  - Irritability [Unknown]
  - Anaemia [Unknown]
  - Agitation [Unknown]
  - Diplopia [Recovered/Resolved]
  - Dysstasia [Unknown]
  - Drug hypersensitivity [Unknown]
  - Strabismus [Unknown]
  - Fall [Unknown]
  - Hostility [Unknown]
  - Asthenia [Unknown]
  - Contusion [Unknown]
  - Meniscus injury [Unknown]
  - Depression [Unknown]

NARRATIVE: CASE EVENT DATE: 2012
